FAERS Safety Report 16976307 (Version 3)
Quarter: 2019Q4

REPORT INFORMATION
  Report Type: Spontaneous
  Country: US (occurrence: US)
  Receive Date: 20191030
  Receipt Date: 20191202
  Transmission Date: 20200122
  Serious: No
  Sender: FDA-Public Use
  Company Number: US-JNJFOC-20191025440

PATIENT
  Age: 58 Year
  Sex: Female
  Weight: 90.8 kg

DRUGS (5)
  1. CARVEDILOL. [Concomitant]
     Active Substance: CARVEDILOL
  2. LISINOPRIL. [Concomitant]
     Active Substance: LISINOPRIL
  3. SOTALOL. [Concomitant]
     Active Substance: SOTALOL
     Indication: PALPITATIONS
  4. TREMFYA [Suspect]
     Active Substance: GUSELKUMAB
     Route: 058
     Dates: start: 20190609
  5. TREMFYA [Suspect]
     Active Substance: GUSELKUMAB
     Indication: PSORIATIC ARTHROPATHY
     Dosage: SERIAL # 185851085318?PRESCRIPTION NUMBER 29819706330
     Route: 058
     Dates: start: 201907

REACTIONS (6)
  - Device malfunction [Unknown]
  - Off label use [Unknown]
  - Product dose omission [Not Recovered/Not Resolved]
  - Nervousness [Unknown]
  - Accidental exposure to product [Not Recovered/Not Resolved]
  - Product use in unapproved indication [Unknown]

NARRATIVE: CASE EVENT DATE: 201907
